FAERS Safety Report 21946914 (Version 1)
Quarter: 2023Q1

REPORT INFORMATION
  Report Type: Spontaneous
  Country: GB (occurrence: GB)
  Receive Date: 20230202
  Receipt Date: 20230202
  Transmission Date: 20230418
  Serious: Yes (Disabling)
  Sender: FDA-Public Use
  Company Number: GB-MHRA-MED-202301280821047530-QBZVK

PATIENT
  Age: 24 Year
  Sex: Female
  Weight: 64 kg

DRUGS (2)
  1. CLINDAMYCIN [Suspect]
     Active Substance: CLINDAMYCIN
     Indication: Tonsillitis bacterial
     Dosage: 150 MG QID (~150MG TWO TAKEN 4 TIMES DAILY)
     Route: 065
     Dates: start: 20230127
  2. FEXOFENADINE [Concomitant]
     Active Substance: FEXOFENADINE HYDROCHLORIDE
     Indication: Skin reaction
     Dosage: UNK
     Route: 065
     Dates: start: 20221001, end: 20221101

REACTIONS (1)
  - Anxiety [Not Recovered/Not Resolved]

NARRATIVE: CASE EVENT DATE: 20230128
